FAERS Safety Report 4596299-1 (Version None)
Quarter: 2005Q1

REPORT INFORMATION
  Report Type: 
  Country: None (occurrence: None)
  Receive Date: 20050302
  Receipt Date: 20050218
  Transmission Date: 20050727
  Serious: Yes (Other)
  Sender: FDA-Public Use
  Company Number: JP-MERCK-0502USA03028

PATIENT
  Sex: Female

DRUGS (4)
  1. PEPCID [Suspect]
     Route: 065
  2. STROCAIN (OXETHAZAINE HYDROCHLORIDE) [Suspect]
     Route: 065
  3. DOGMATYL [Suspect]
     Route: 065
  4. CEREKINON [Suspect]
     Route: 065

REACTIONS (3)
  - CONVULSION [None]
  - HAEMATURIA [None]
  - RHABDOMYOLYSIS [None]
